FAERS Safety Report 10502664 (Version 1)
Quarter: 2014Q4

REPORT INFORMATION
  Report Type: Report from Study
  Country: GB (occurrence: GB)
  Receive Date: 20141007
  Receipt Date: 20141007
  Transmission Date: 20150528
  Serious: Yes (Life-Threatening)
  Sender: FDA-Public Use
  Company Number: GB-ASTELLAS-2014US014057

PATIENT
  Age: 74 Year
  Sex: Male

DRUGS (2)
  1. ERLOTINIB [Suspect]
     Active Substance: ERLOTINIB
     Indication: LUNG NEOPLASM MALIGNANT
     Dosage: 150 UNIT NOT REPORTED, UNKNOWN FREQ.
     Route: 048
     Dates: end: 20140422
  2. ERLOTINIB [Suspect]
     Active Substance: ERLOTINIB
     Dosage: 150 UNIT NOT REPORTED, UNKNOWN FREQ.
     Route: 048
     Dates: end: 20140520

REACTIONS (1)
  - Toxicity to various agents [Unknown]
